FAERS Safety Report 22366406 (Version 1)
Quarter: 2023Q2

REPORT INFORMATION
  Report Type: Other
  Country: JP (occurrence: JP)
  Receive Date: 20230525
  Receipt Date: 20230525
  Transmission Date: 20230722
  Serious: Yes (Death, Other)
  Sender: FDA-Public Use
  Company Number: JP-CHUGAI-2023018596

PATIENT
  Age: 73 Year
  Sex: Male

DRUGS (2)
  1. HERCEPTIN [Suspect]
     Active Substance: TRASTUZUMAB
     Indication: Salivary gland cancer
     Route: 041
  2. DOCETAXEL [Concomitant]
     Active Substance: DOCETAXEL
     Indication: Salivary gland cancer
     Dosage: UNK
     Route: 041

REACTIONS (2)
  - Neutrophil count decreased [Unknown]
  - Adenocarcinoma of salivary gland [Fatal]
